FAERS Safety Report 19948175 (Version 3)
Quarter: 2021Q4

REPORT INFORMATION
  Report Type: Spontaneous
  Country: DE (occurrence: DE)
  Receive Date: 20211012
  Receipt Date: 20211027
  Transmission Date: 20220303
  Serious: Yes (Hospitalization)
  Sender: FDA-Public Use
  Company Number: DE-ADRED-06503-01

PATIENT
  Age: 84 Year
  Sex: Male

DRUGS (16)
  1. TORSEMIDE [Suspect]
     Active Substance: TORSEMIDE
     Indication: Product used for unknown indication
     Dosage: 10 MILLIGRAM, BID (10 MG, 1-1-0-0, TABLETTEN)
     Route: 048
  2. CARVEDILOL [Suspect]
     Active Substance: CARVEDILOL
     Indication: Product used for unknown indication
     Dosage: 12.5 MILLIGRAM, BID (12.5 MG, 1-0-1-0, TABLETTEN)
     Route: 048
  3. APIXABAN [Suspect]
     Active Substance: APIXABAN
     Indication: Product used for unknown indication
     Dosage: 5 MILLIGRAM, BID (5 MG, 1-0-1-0, TABLETTEN)
     Route: 048
  4. CANDESARTAN [Concomitant]
     Active Substance: CANDESARTAN
     Indication: Product used for unknown indication
     Dosage: 16 MILLIGRAM, BID (16 MG, 1-0-1-0, TABLETTEN)
     Route: 048
  5. NITROLINGUAL [Concomitant]
     Active Substance: NITROGLYCERIN
     Indication: Product used for unknown indication
     Dosage: 0.4 MILLIGRAM (0.4 MG, BEI BEDARF, SPRAY)
     Route: 055
  6. INSULIN NOS [Concomitant]
     Active Substance: INSULIN NOS
     Indication: Product used for unknown indication
     Dosage: 10 INTERNATIONAL UNIT, QD (10 IE, 1-0-0-0, INJEKTIONS-/INFUSIONSL?SUNG)
     Route: 058
  7. LATANOPROST [Concomitant]
     Active Substance: LATANOPROST
     Indication: Product used for unknown indication
     Dosage: UNK, QD (5/50 MG/MCG, 0-0-1-0, TROPFEN)
     Route: 031
  8. PANTOPRAZOLE [Concomitant]
     Active Substance: PANTOPRAZOLE
     Indication: Product used for unknown indication
     Dosage: 40 MILLIGRAM, QD (40 MG, 1-0-0-0, TABLETTEN)
     Route: 048
  9. BIOTIN [Concomitant]
     Active Substance: BIOTIN
     Indication: Product used for unknown indication
     Dosage: UNK UNK, QD (0-0-1-0, KAPSELN)
     Route: 048
  10. LERCANIDIPINE [Concomitant]
     Active Substance: LERCANIDIPINE
     Indication: Product used for unknown indication
     Dosage: 9.44 MILLIGRAM, QD (9.44 MG, 1-0-0-0, TABLETTEN)
     Route: 048
  11. IRON [Concomitant]
     Active Substance: IRON
     Indication: Product used for unknown indication
     Dosage: 100 MILLIGRAM, QD (100 MG, 1-0-0-0, KAPSELN)
     Route: 048
  12. ALLOPURINOL [Concomitant]
     Active Substance: ALLOPURINOL
     Indication: Product used for unknown indication
     Dosage: 100 MILLIGRAM, QD (100 MG, 1-0-0-0, TABLETTEN)
     Route: 048
  13. CYANOCOBALAMIN [Concomitant]
     Active Substance: CYANOCOBALAMIN
     Indication: Product used for unknown indication
     Dosage: UNK, QD (1-0-0-0, KAPSELN)
     Route: 048
  14. IPRATROPIUM BROMIDE [Concomitant]
     Active Substance: IPRATROPIUM BROMIDE
     Indication: Product used for unknown indication
     Dosage: UNK (39.47/20.16 MCG, BEI BEDARF 2 HUB, DOSIERAEROSOL)
     Route: 055
  15. OLODATEROL\TIOTROPIUM [Concomitant]
     Active Substance: OLODATEROL\TIOTROPIUM
     Indication: Product used for unknown indication
     Dosage: UNK (2.5/2.5 MCG, 2-0-0-0, DOSIERAEROSOL)
     Route: 055
  16. FLUTICASONE [Concomitant]
     Active Substance: FLUTICASONE
     Indication: Product used for unknown indication
     Dosage: UNK, BID (200 IE/ML, 1-0-1-0, DOSIERAEROSOL)
     Route: 055

REACTIONS (6)
  - Dyspnoea [Unknown]
  - Haematochezia [Unknown]
  - General physical health deterioration [Recovering/Resolving]
  - Dyspnoea exertional [Recovering/Resolving]
  - Faeces discoloured [Recovering/Resolving]
  - Product administration error [Unknown]
